FAERS Safety Report 9862681 (Version 1)
Quarter: 2014Q1

REPORT INFORMATION
  Report Type: Spontaneous
  Country: US (occurrence: US)
  Receive Date: 20140203
  Receipt Date: 20140203
  Transmission Date: 20141002
  Serious: Yes (Death, Other)
  Sender: FDA-Public Use
  Company Number: CHPA2014US001784

PATIENT
  Age: 41 Year
  Sex: Female

DRUGS (4)
  1. DIPHENHYDRAMINE [Suspect]
     Dosage: UNK
     Route: 065
  2. METHADONE [Suspect]
     Dosage: UNK
     Route: 065
  3. CITALOPRAM [Suspect]
     Dosage: UNK
     Route: 065
  4. ETHANOL [Suspect]
     Dosage: UNK
     Route: 065

REACTIONS (2)
  - Accidental exposure to product [Fatal]
  - Cardio-respiratory arrest [Unknown]
